FAERS Safety Report 6845617-X (Version None)
Quarter: 2010Q3

REPORT INFORMATION
  Report Type: 
  Country: None (occurrence: None)
  Receive Date: 20100715
  Receipt Date: 20070824
  Transmission Date: 20110219
  Serious: No
  Sender: FDA-Public Use
  Company Number: US-PFIZER INC-2007072375

PATIENT
  Sex: Female
  Weight: 71.8 kg

DRUGS (4)
  1. CHANTIX [Suspect]
     Indication: SMOKING CESSATION THERAPY
     Dates: start: 20070801
  2. IMIPRAMINE [Concomitant]
  3. LORAZEPAM [Concomitant]
  4. ZYRTEC [Concomitant]

REACTIONS (1)
  - INSOMNIA [None]
